FAERS Safety Report 20484399 (Version 1)
Quarter: 2022Q1

REPORT INFORMATION
  Report Type: Spontaneous
  Country: DE (occurrence: DE)
  Receive Date: 20220217
  Receipt Date: 20220217
  Transmission Date: 20220423
  Serious: Yes (Other)
  Sender: FDA-Public Use
  Company Number: DE-EMBRYOTOX-202011278

PATIENT
  Sex: Female
  Weight: 55 kg

DRUGS (3)
  1. METHOTREXATE SODIUM [Suspect]
     Active Substance: METHOTREXATE SODIUM
     Indication: Crohn^s disease
     Dosage: 0. - 3.5. GESTATIONAL WEEK
     Route: 048
     Dates: start: 20200915, end: 20201011
  2. CIMZIA [Concomitant]
     Active Substance: CERTOLIZUMAB PEGOL
     Indication: Crohn^s disease
     Dosage: 200 [MG/2WK ], 0. - 2.5. GESTATIONAL WEEK
     Route: 058
     Dates: start: 20200915, end: 20201004
  3. FOLIC ACID [Concomitant]
     Active Substance: FOLIC ACID
     Indication: Prophylaxis of neural tube defect
     Dosage: 5 MG/WK, 0. - 4.6. GESTATIONAL WEEK
     Route: 048
     Dates: start: 20200915, end: 20201019

REACTIONS (3)
  - Abortion spontaneous [Recovered/Resolved]
  - Haemorrhage in pregnancy [Unknown]
  - Exposure during pregnancy [Unknown]
